FAERS Safety Report 8530623-X (Version None)
Quarter: 2012Q3

REPORT INFORMATION
  Report Type: 
  Country: None (occurrence: None)
  Receive Date: 20120723
  Receipt Date: 20120719
  Transmission Date: 20120928
  Serious: Yes (Hospitalization)
  Sender: FDA-Public Use
  Company Number: IN-ABBOTT-12P-078-0957915-00

PATIENT
  Age: 26 Year
  Sex: Male

DRUGS (7)
  1. RISPERIDONE [Suspect]
     Indication: MANIA
     Dosage: DAILY
     Route: 065
  2. DIAZEPAM [Concomitant]
     Indication: PRODUCT USED FOR UNKNOWN INDICATION
     Dosage: 30 MG DAILY
  3. VALPROATE SODIUM [Suspect]
     Dosage: DAILY
     Route: 065
  4. RISPERIDONE [Suspect]
     Dosage: DAILY
     Route: 065
  5. VALPROATE SODIUM [Suspect]
     Indication: MANIA
     Dosage: DAILY
     Route: 065
  6. VALPROATE SODIUM [Suspect]
     Dosage: DAILY
     Route: 065
  7. RISPERIDONE [Suspect]
     Dosage: DAILY
     Route: 065

REACTIONS (1)
  - HOLMES TREMOR [None]
